FAERS Safety Report 13393763 (Version 1)
Quarter: 2017Q1

REPORT INFORMATION
  Report Type: Report from Study
  Country: BR (occurrence: BR)
  Receive Date: 20170331
  Receipt Date: 20170331
  Transmission Date: 20170429
  Serious: Yes (Other)
  Sender: FDA-Public Use
  Company Number: BR-BRISTOL-MYERS SQUIBB COMPANY-BMS-2017-026292

PATIENT
  Age: 76 Year
  Sex: Male

DRUGS (1)
  1. ABATACEPT [Suspect]
     Active Substance: ABATACEPT
     Indication: RHEUMATOID ARTHRITIS
     Dosage: 1 DF, QMO
     Route: 042

REACTIONS (4)
  - Fall [Unknown]
  - Renal haemorrhage [Unknown]
  - Malaise [Unknown]
  - Insomnia [Unknown]

NARRATIVE: CASE EVENT DATE: 20170323
